FAERS Safety Report 15962178 (Version 1)
Quarter: 2019Q1

REPORT INFORMATION
  Report Type: Spontaneous
  Country: US (occurrence: US)
  Receive Date: 20190214
  Receipt Date: 20190214
  Transmission Date: 20190417
  Serious: Yes (Other)
  Sender: FDA-Public Use
  Company Number: US-JNJFOC-20190213189

PATIENT
  Sex: Female

DRUGS (4)
  1. XARELTO [Suspect]
     Active Substance: RIVAROXABAN
     Indication: THROMBOSIS
     Route: 048
     Dates: start: 20190125
  2. OPDIVO [Concomitant]
     Active Substance: NIVOLUMAB
     Indication: LUNG NEOPLASM MALIGNANT
     Route: 065
  3. OXYCODONE [Suspect]
     Active Substance: OXYCODONE
     Indication: PAIN
     Route: 065
     Dates: start: 20190205, end: 201902
  4. ALBUTEROL. [Concomitant]
     Active Substance: ALBUTEROL
     Indication: LUNG NEOPLASM MALIGNANT
     Route: 055

REACTIONS (2)
  - Vomiting [Unknown]
  - Faecaloma [Unknown]

NARRATIVE: CASE EVENT DATE: 201902
